FAERS Safety Report 4587199-1 (Version None)
Quarter: 2005Q1

REPORT INFORMATION
  Report Type: 
  Country: None (occurrence: None)
  Receive Date: 20050215
  Receipt Date: 20050208
  Transmission Date: 20050727
  Serious: Yes (Hospitalization)
  Sender: FDA-Public Use
  Company Number: TPA2005A00145

PATIENT
  Age: 63 Year
  Sex: Female
  Weight: 85.2762 kg

DRUGS (4)
  1. ACTOS [Suspect]
     Indication: DIABETES MELLITUS NON-INSULIN-DEPENDENT
     Dosage: 45 MG, PER ORAL
     Route: 048
  2. GLUCOTROL XL (GLIPIZIDE) (20 MILLIGRAM) [Concomitant]
  3. TOPROL (METOPROLOL) (100 MILLIGRAM) [Concomitant]
  4. LASIX (FUROSEMIDE) (80 MILLIGRAM) [Concomitant]

REACTIONS (2)
  - CARDIAC FAILURE CONGESTIVE [None]
  - RENAL FAILURE [None]
